FAERS Safety Report 16085199 (Version 2)
Quarter: 2019Q2

REPORT INFORMATION
  Report Type: Spontaneous
  Country: US (occurrence: US)
  Receive Date: 20190318
  Receipt Date: 20190503
  Transmission Date: 20190711
  Serious: No
  Sender: FDA-Public Use
  Company Number: US-BAYER-2019-053926

PATIENT
  Age: 72 Year
  Sex: Female
  Weight: 86 kg

DRUGS (2)
  1. MIRALAX [Suspect]
     Active Substance: POLYETHYLENE GLYCOL 3350
     Indication: GASTROINTESTINAL DISORDER
     Dosage: UNK
     Route: 065
  2. MIRALAX [Suspect]
     Active Substance: POLYETHYLENE GLYCOL 3350
     Indication: GASTROINTESTINAL DISORDER
     Dosage: 17 G MIXED IN 4-8OZ OF WATER
     Route: 048
     Dates: start: 20190313, end: 20190313

REACTIONS (5)
  - Poor quality product administered [Unknown]
  - Product solubility abnormal [None]
  - Drug ineffective [Unknown]
  - Product colour issue [None]
  - Liquid product physical issue [Unknown]
